FAERS Safety Report 20033742 (Version 2)
Quarter: 2021Q4

REPORT INFORMATION
  Report Type: Spontaneous
  Country: IN (occurrence: IN)
  Receive Date: 20211104
  Receipt Date: 20211214
  Transmission Date: 20220303
  Serious: Yes (Death, Other)
  Sender: FDA-Public Use
  Company Number: IN-PFIZER INC-2021902204

PATIENT
  Age: 41 Year
  Sex: Female

DRUGS (1)
  1. PALBOCICLIB [Suspect]
     Active Substance: PALBOCICLIB
     Indication: Breast cancer metastatic
     Dosage: 125 MG, 1X/DAY
     Route: 048
     Dates: start: 20180813, end: 20210731

REACTIONS (5)
  - Renal failure [Fatal]
  - Respiration abnormal [Fatal]
  - Neoplasm progression [Fatal]
  - Second primary malignancy [Unknown]
  - Brain neoplasm [Unknown]
